FAERS Safety Report 21343451 (Version 2)
Quarter: 2024Q1

REPORT INFORMATION
  Report Type: Spontaneous
  Country: FR (occurrence: None)
  Receive Date: 20220916
  Receipt Date: 20240201
  Transmission Date: 20240410
  Serious: Yes (Other)
  Sender: FDA-Public Use
  Company Number: 2022A311399

PATIENT
  Age: 42 Year
  Sex: Female
  Weight: 50 kg

DRUGS (21)
  1. SAPHNELO [Suspect]
     Active Substance: ANIFROLUMAB\ANIFROLUMAB-FNIA
     Indication: Systemic lupus erythematosus
     Route: 042
     Dates: start: 20220513
  2. SAPHNELO [Suspect]
     Active Substance: ANIFROLUMAB\ANIFROLUMAB-FNIA
     Indication: Systemic lupus erythematosus
     Route: 042
     Dates: start: 20220608
  3. SAPHNELO [Suspect]
     Active Substance: ANIFROLUMAB\ANIFROLUMAB-FNIA
     Indication: Systemic lupus erythematosus
     Route: 042
     Dates: start: 20220708
  4. SAPHNELO [Suspect]
     Active Substance: ANIFROLUMAB\ANIFROLUMAB-FNIA
     Indication: Systemic lupus erythematosus
     Route: 042
     Dates: start: 20220802
  5. PLAQUENIL [Concomitant]
     Active Substance: HYDROXYCHLOROQUINE SULFATE
  6. PRAZEPAM [Concomitant]
     Active Substance: PRAZEPAM
  7. REVLIMID [Concomitant]
     Active Substance: LENALIDOMIDE
  8. OMEPRAZOLE [Concomitant]
     Active Substance: OMEPRAZOLE
  9. BENLYSTA [Concomitant]
     Active Substance: BELIMUMAB
  10. XARELTO [Concomitant]
     Active Substance: RIVAROXABAN
  11. ESTRADIOL [Concomitant]
     Active Substance: ESTRADIOL
  12. CHLORMADINONE ACETATE [Concomitant]
     Active Substance: CHLORMADINONE ACETATE
  13. PREDNISONE [Concomitant]
     Active Substance: PREDNISONE
  14. CHLOROQUINE [Concomitant]
     Active Substance: CHLOROQUINE
  15. METHOTREXATE [Concomitant]
     Active Substance: METHOTREXATE
  16. CYCLOSPORINE [Concomitant]
     Active Substance: CYCLOSPORINE
  17. AZATHIOPRINE SODIUM [Concomitant]
     Active Substance: AZATHIOPRINE SODIUM
  18. THALIDOMIDE [Concomitant]
     Active Substance: THALIDOMIDE
  19. DAPSONE\FERROUS OXALATE [Concomitant]
     Active Substance: DAPSONE\FERROUS OXALATE
  20. RITUXIMAB [Concomitant]
     Active Substance: RITUXIMAB
  21. BELIMUMAB [Concomitant]
     Active Substance: BELIMUMAB

REACTIONS (4)
  - Arthralgia [Recovered/Resolved]
  - Oedema peripheral [Not Recovered/Not Resolved]
  - Condition aggravated [Unknown]
  - Fatigue [Unknown]

NARRATIVE: CASE EVENT DATE: 20220517
